FAERS Safety Report 9881524 (Version 4)
Quarter: 2014Q2

REPORT INFORMATION
  Report Type: Spontaneous
  Country: US (occurrence: US)
  Receive Date: 20140207
  Receipt Date: 20140527
  Transmission Date: 20141212
  Serious: Yes (Hospitalization)
  Sender: FDA-Public Use
  Company Number: US-PFIZER INC-2014032366

PATIENT
  Age: 66 Year
  Sex: Female

DRUGS (19)
  1. INLYTA [Suspect]
     Indication: RENAL CANCER
     Dosage: 5 MG, UNK
     Dates: start: 20131030
  2. SUTENT [Suspect]
     Indication: RENAL CANCER
     Dosage: 50 MG, 1X/DAY, 4 WEEKS ON 2 WEEKS OFF
     Route: 048
  3. CARDIZEM [Concomitant]
     Dosage: UNK
  4. COUMADIN [Concomitant]
     Dosage: UNK
  5. DILTIAZEM HCL ER [Concomitant]
     Dosage: UNK
  6. FENTANYL [Concomitant]
     Dosage: UNK
  7. FUROSEMIDE [Concomitant]
     Dosage: UNK
  8. METOPROLOL TARTRATE [Concomitant]
     Dosage: UNK
  9. BENADRYL [Concomitant]
     Dosage: UNK
  10. PROCRIT [Concomitant]
     Dosage: UNK
  11. LASIX [Concomitant]
     Dosage: UNK
  12. SERTRALINE HYDROCHLORIDE [Concomitant]
     Dosage: UNK
  13. SPIRONOLACTONE [Concomitant]
     Dosage: UNK
  14. OMEPRAZOLE [Concomitant]
     Dosage: UNK
  15. TORISEL [Concomitant]
     Dosage: UNK
  16. OXYCODONE HYDROCHLORIDE [Concomitant]
     Dosage: UNK
  17. WARFARIN SODIUM [Concomitant]
     Dosage: UNK
  18. FLEXERIL [Concomitant]
     Dosage: UNK
  19. PEPCID [Concomitant]
     Dosage: UNK

REACTIONS (2)
  - Pain [Recovered/Resolved]
  - Hip fracture [Recovered/Resolved]
